FAERS Safety Report 8782699 (Version 1)
Quarter: 2012Q4

REPORT INFORMATION
  Report Type: 
  Country: US (occurrence: US)
  Receive Date: 20120913
  Receipt Date: 20120913
  Transmission Date: 20130627
  Serious: No
  Sender: FDA-Public Use
  Company Number: US-BAYER-2012-094272

PATIENT

DRUGS (5)
  1. ALEVE CAPLET/TABLET,MIDOL EXTENDED RELIEF CAPLET [Suspect]
     Indication: ANALGESIC THERAPY
     Route: 048
  2. ALEVE CAPLET/TABLET,MIDOL EXTENDED RELIEF CAPLET [Suspect]
     Indication: MUSCLE SPASMS
  3. BAYER GENUINE ASPIRIN ORIGINAL STRENGTH [Suspect]
     Indication: ANALGESIC THERAPY
     Route: 048
  4. BAYER GENUINE ASPIRIN ORIGINAL STRENGTH [Suspect]
     Indication: MUSCLE SPASMS
  5. IBUPROFEN [Concomitant]
     Indication: MUSCLE SPASMS

REACTIONS (1)
  - Muscle spasms [None]
